FAERS Safety Report 5176506-7 (Version None)
Quarter: 2006Q4

REPORT INFORMATION
  Report Type: 
  Country: None (occurrence: None)
  Receive Date: 20061207
  Receipt Date: 20061027
  Transmission Date: 20070319
  Serious: Yes (Hospitalization)
  Sender: FDA-Public Use
  Company Number: 232278

PATIENT
  Age: 52 Year
  Sex: Female

DRUGS (6)
  1. AVASTIN [Suspect]
     Indication: COLORECTAL CANCER
     Dosage: 450 MG, QD, INTRAVENOUS
     Route: 042
     Dates: start: 20061017
  2. CAPECITABINE (CAPECITABINE) [Suspect]
     Indication: COLORECTAL CANCER
     Dosage: 3300 MG, QD, ORAL
     Route: 048
     Dates: start: 20061017
  3. OXALIPLATIN [Suspect]
     Indication: COLORECTAL CANCER
     Dosage: 225 MG, QD, INTRAVENOUS
     Route: 042
     Dates: start: 20061017
  4. CETUXIMAB (CETUXIMAB) [Suspect]
     Indication: COLORECTAL CANCER
     Dosage: 688 MG, QD, INTRAVENOUS
     Route: 042
     Dates: start: 20061017
  5. AMITRIPTYLINE HCL [Concomitant]
  6. TOPIRAMATE [Concomitant]

REACTIONS (9)
  - ALANINE AMINOTRANSFERASE INCREASED [None]
  - ASPARTATE AMINOTRANSFERASE INCREASED [None]
  - BLOOD ALKALINE PHOSPHATASE INCREASED [None]
  - BLOOD LACTATE DEHYDROGENASE INCREASED [None]
  - CYSTITIS [None]
  - DIARRHOEA [None]
  - GAMMA-GLUTAMYLTRANSFERASE INCREASED [None]
  - PYREXIA [None]
  - TRANSAMINASES INCREASED [None]
